FAERS Safety Report 8949867 (Version 5)
Quarter: 2013Q1

REPORT INFORMATION
  Report Type: Report from Study
  Country: JP (occurrence: JP)
  Receive Date: 20121206
  Receipt Date: 20130201
  Transmission Date: 20140127
  Serious: Yes (Hospitalization)
  Sender: FDA-Public Use
  Company Number: JP-PFIZER INC-2012299374

PATIENT
  Age: 42 Year
  Sex: Male
  Weight: 84 kg

DRUGS (11)
  1. IRINOTECAN HCL [Suspect]
     Indication: RECTOSIGMOID CANCER
     Dosage: CYCLIC
     Route: 042
     Dates: start: 20121005
  2. FLUOROURACIL [Suspect]
     Indication: RECTOSIGMOID CANCER
     Dosage: CYCLIC
     Route: 042
     Dates: start: 20121005
  3. BLINDED THERAPY [Suspect]
     Indication: RECTOSIGMOID CANCER
     Dosage: CYCLIC
     Route: 042
     Dates: start: 20121005
  4. FOLINIC ACID [Suspect]
     Indication: RECTOSIGMOID CANCER
     Dosage: CYCLIC
     Route: 042
     Dates: start: 20121005
  5. LANSOPRAZOLE [Concomitant]
     Indication: PROPHYLAXIS
     Dosage: UNK
     Dates: start: 20111213
  6. AMLODIPINE [Concomitant]
     Indication: HYPERTENSION
     Dosage: UNK
     Dates: start: 20120911
  7. MICARDIS [Concomitant]
     Indication: HYPERTENSION
     Dosage: UNK
     Dates: start: 20110201
  8. RESTAMIN [Concomitant]
     Indication: ALLERGY PROPHYLAXIS
     Dosage: UNK
     Dates: start: 20121005
  9. DEXART [Concomitant]
     Indication: ALLERGY PROPHYLAXIS
     Dosage: UNK
     Dates: start: 20121005
  10. ALOXI [Concomitant]
     Indication: PROPHYLAXIS OF NAUSEA AND VOMITING
     Dosage: UNK
     Dates: start: 20121005
  11. DEXAMETHASONE [Concomitant]
     Indication: PROPHYLAXIS OF NAUSEA AND VOMITING
     Dosage: UNK
     Dates: start: 20121006

REACTIONS (2)
  - Wound infection [Recovered/Resolved]
  - Device related infection [Recovering/Resolving]
